FAERS Safety Report 10867110 (Version 1)
Quarter: 2015Q1

REPORT INFORMATION
  Report Type: Report from Study
  Country: CO (occurrence: CO)
  Receive Date: 20150225
  Receipt Date: 20150225
  Transmission Date: 20150721
  Serious: Yes (Death, Hospitalization)
  Sender: FDA-Public Use
  Company Number: CO-ASTRAZENECA-2015SE16177

PATIENT
  Age: 18768 Day
  Sex: Male

DRUGS (1)
  1. BRILINTA [Suspect]
     Active Substance: TICAGRELOR
     Indication: INFARCTION
     Route: 048
     Dates: start: 20131204, end: 20140703

REACTIONS (2)
  - Death [Fatal]
  - Brain death [Not Recovered/Not Resolved]

NARRATIVE: CASE EVENT DATE: 20140703
